FAERS Safety Report 6506795-5 (Version None)
Quarter: 2009Q4

REPORT INFORMATION
  Report Type: 
  Country: None (occurrence: None)
  Receive Date: 20091221
  Receipt Date: 20091210
  Transmission Date: 20100525
  Serious: Yes (Hospitalization)
  Sender: FDA-Public Use
  Company Number: CA-JNJFOC-20091203952

PATIENT
  Age: 75 Year
  Sex: Female
  Weight: 58.7 kg

DRUGS (8)
  1. REMICADE [Suspect]
     Indication: RHEUMATOID ARTHRITIS
     Route: 042
  2. PANTOPRAZOLE [Concomitant]
     Indication: GASTROOESOPHAGEAL REFLUX DISEASE
     Route: 048
  3. FOLIC ACID [Concomitant]
     Indication: PROPHYLAXIS
     Route: 048
  4. METHOTREXATE [Concomitant]
     Indication: ARTHRITIS
     Route: 048
  5. FOSAMAX [Concomitant]
     Indication: OSTEOPOROSIS
     Route: 048
  6. ACCUPRIL [Concomitant]
     Indication: HYPERTENSION
     Route: 048
  7. TYLENOL (CAPLET) [Concomitant]
     Indication: ARTHRITIS
     Route: 048
  8. AVEENO [Concomitant]
     Indication: ECZEMA
     Route: 061

REACTIONS (1)
  - OSTEOARTHRITIS [None]
